FAERS Safety Report 7672360-X (Version None)
Quarter: 2011Q3

REPORT INFORMATION
  Report Type: 
  Country: None (occurrence: None)
  Receive Date: 20110809
  Receipt Date: 20110801
  Transmission Date: 20111222
  Serious: Yes (Other)
  Sender: FDA-Public Use
  Company Number: ES-BRISTOL-MYERS SQUIBB COMPANY-15953680

PATIENT
  Age: 57 Year
  Sex: Female

DRUGS (3)
  1. CYCLOPHOSPHAMIDE [Suspect]
     Indication: NEOPLASM
  2. THIOTEPA [Suspect]
     Indication: NEOPLASM
  3. CARMUSTINE [Suspect]
     Indication: NEOPLASM

REACTIONS (2)
  - DERMATITIS [None]
  - METAPLASIA [None]
